FAERS Safety Report 5966806-2 (Version None)
Quarter: 2008Q4

REPORT INFORMATION
  Report Type: 
  Country: None (occurrence: None)
  Receive Date: 20081125
  Receipt Date: 20081119
  Transmission Date: 20090506
  Serious: Yes (Death)
  Sender: FDA-Public Use
  Company Number: NL-B.I. PHARMACEUTICALS,INC./RIDGEFIELD-2008-NL-00763NL

PATIENT
  Sex: Male
  Weight: 61 kg

DRUGS (7)
  1. SIFROL 0.088MG [Suspect]
     Indication: RESTLESS LEGS SYNDROME
     Dosage: .5MG
     Dates: end: 20080516
  2. CIPRAMIL [Suspect]
     Indication: DEPRESSION
     Dosage: 20MG
     Dates: start: 20050101
  3. OXAZEPAM PCH [Concomitant]
     Dosage: 10 TOT 50MG PRN
     Dates: start: 20050101
  4. RIVOTRIL [Concomitant]
     Dosage: .5MG
  5. SELEKTINE [Concomitant]
     Dosage: TIMES PER 1DF
  6. EZETROL [Concomitant]
     Dosage: TIMES PER 1DF
  7. DIOVAN HCT [Concomitant]
     Dosage: 80/12.5MG TIMES PER 1DF

REACTIONS (5)
  - COMPLETED SUICIDE [None]
  - DEATH [None]
  - DEPRESSION [None]
  - DRUG INTERACTION [None]
  - MANIA [None]
